FAERS Safety Report 17368213 (Version 1)
Quarter: 2020Q1

REPORT INFORMATION
  Report Type: Spontaneous
  Country: US (occurrence: US)
  Receive Date: 20200204
  Receipt Date: 20200204
  Transmission Date: 20200409
  Serious: Yes (Other)
  Sender: FDA-Public Use
  Company Number: US-TEVA-2020-US-1178868

PATIENT
  Age: 34 Year
  Sex: Male

DRUGS (9)
  1. TEMOZOLOMIDE. [Concomitant]
     Active Substance: TEMOZOLOMIDE
     Indication: VASOGENIC CEREBRAL OEDEMA
     Dosage: CYCLE 2
     Route: 065
  2. BEVACIZUMAB. [Suspect]
     Active Substance: BEVACIZUMAB
     Indication: ASTROCYTOMA
     Dosage: 6 CYCLES AND 4 ADDITIONAL CYCLES
     Route: 065
  3. IFOSFAMIDE. [Suspect]
     Active Substance: IFOSFAMIDE
     Indication: SARCOMA
     Dosage: DAYS 1-2 EACH 21-DAY CYCLE
     Route: 065
  4. DEXAMETHASONE. [Suspect]
     Active Substance: DEXAMETHASONE
     Indication: BRAIN OEDEMA
     Route: 065
  5. DOXORUBICIN [Suspect]
     Active Substance: DOXORUBICIN
     Indication: SARCOMA
     Dosage: 30 MG/M2 DAYS 1-2 EACH 21-DAY CYCLE
     Route: 065
  6. BEVACIZUMAB. [Suspect]
     Active Substance: BEVACIZUMAB
     Indication: VASOGENIC CEREBRAL OEDEMA
  7. LEVETIRACETAM. [Concomitant]
     Active Substance: LEVETIRACETAM
     Indication: SEIZURE PROPHYLAXIS
     Route: 065
  8. TEMOZOLOMIDE. [Concomitant]
     Active Substance: TEMOZOLOMIDE
     Indication: ASTROCYTOMA
     Dosage: CYCLE 1 : 150 MG/M2, DAYS 1-5 EACH 28-DAY CYCLE
     Route: 065
  9. BEVACIZUMAB. [Suspect]
     Active Substance: BEVACIZUMAB
     Indication: SARCOMA

REACTIONS (5)
  - Febrile neutropenia [Unknown]
  - Fatigue [Unknown]
  - Folliculitis [Not Recovered/Not Resolved]
  - Drug intolerance [Unknown]
  - Myopathy [Unknown]
